FAERS Safety Report 19187440 (Version 1)
Quarter: 2021Q2

REPORT INFORMATION
  Report Type: Spontaneous
  Country: US (occurrence: US)
  Receive Date: 20210428
  Receipt Date: 20210428
  Transmission Date: 20210717
  Serious: No
  Sender: FDA-Public Use
  Company Number: US-AMGEN-USASP2020214172

PATIENT
  Sex: Female

DRUGS (1)
  1. ENBREL [Suspect]
     Active Substance: ETANERCEPT
     Indication: SOFT TISSUE DISORDER
     Dosage: 50 MILLIGRAM, QWK
     Route: 058
     Dates: end: 20201206

REACTIONS (1)
  - Off label use [Unknown]
